FAERS Safety Report 11511331 (Version 2)
Quarter: 2015Q4

REPORT INFORMATION
  Report Type: Spontaneous
  Country: US (occurrence: US)
  Receive Date: 20150915
  Receipt Date: 20151106
  Transmission Date: 20160304
  Serious: Yes (Hospitalization, Other)
  Sender: FDA-Public Use
  Company Number: US-PFIZER INC-2015293603

PATIENT
  Age: 49 Year
  Sex: Female
  Weight: 73 kg

DRUGS (5)
  1. MELOXICAM. [Concomitant]
     Active Substance: MELOXICAM
     Indication: ARTHRITIS
     Dosage: UNK, 1X/DAY
  2. DILANTIN [Suspect]
     Active Substance: PHENYTOIN
     Indication: EPILEPSY
     Dosage: 200 MG, DAILY
  3. PLAQUENIL [Concomitant]
     Active Substance: HYDROXYCHLOROQUINE SULFATE
     Indication: SYSTEMIC LUPUS ERYTHEMATOSUS
     Dosage: UNK, 2X/DAY (SHE BELIEVED THE DOSE WAS 200)
  4. DILANTIN [Suspect]
     Active Substance: PHENYTOIN
     Dosage: 150 MG, 2X/DAY (300 MG DAILY, 2 DF IN THE MORNING AND 2 AT NIGHT)
     Dates: start: 2015
  5. DILANTIN [Suspect]
     Active Substance: PHENYTOIN
     Dosage: 400 MG, UNK
     Dates: start: 2014, end: 20150613

REACTIONS (12)
  - Sedation [Recovered/Resolved]
  - Vision blurred [Recovered/Resolved]
  - Apparent death [Recovered/Resolved]
  - Fall [Recovered/Resolved]
  - Dysphemia [Recovered/Resolved]
  - Anticonvulsant drug level decreased [Unknown]
  - Anticonvulsant drug level increased [Recovered/Resolved]
  - Circulatory collapse [Recovered/Resolved]
  - Condition aggravated [Recovered/Resolved]
  - Dizziness [Recovered/Resolved]
  - Weight decreased [Recovered/Resolved]
  - Toxicity to various agents [Recovered/Resolved]

NARRATIVE: CASE EVENT DATE: 2014
